FAERS Safety Report 7941655-4 (Version None)
Quarter: 2011Q4

REPORT INFORMATION
  Report Type: 
  Country: None (occurrence: None)
  Receive Date: 20111128
  Receipt Date: 20111128
  Transmission Date: 20120403
  Serious: Yes (Other)
  Sender: FDA-Public Use
  Company Number: None

PATIENT
  Age: 55 Year
  Sex: Male
  Weight: 111.58 kg

DRUGS (11)
  1. VICTOZA [Suspect]
     Indication: GLYCOSYLATED HAEMOGLOBIN INCREASED
     Dosage: 1.2 MG
     Route: 058
     Dates: start: 20111019, end: 20111104
  2. LOPRESSOR [Concomitant]
  3. LOPID [Concomitant]
  4. JANUVIA [Concomitant]
  5. AMARYL [Concomitant]
  6. METFORMIN HCL [Concomitant]
  7. ASPIRIN [Concomitant]
  8. ZESTRIL [Concomitant]
  9. MAXZIDE [Concomitant]
  10. XANAX [Concomitant]
  11. PRILOSEC [Concomitant]

REACTIONS (1)
  - PANCREATITIS [None]
